FAERS Safety Report 11327904 (Version 2)
Quarter: 2015Q3

REPORT INFORMATION
  Report Type: Report from Study
  Country: US (occurrence: US)
  Receive Date: 20150731
  Receipt Date: 20150806
  Transmission Date: 20151125
  Serious: Yes (Hospitalization)
  Sender: FDA-Public Use
  Company Number: US-ABBVIE-15P-163-1435100-00

PATIENT
  Age: 57 Year
  Sex: Female
  Weight: 79.45 kg

DRUGS (5)
  1. PROTONIX [Concomitant]
     Active Substance: PANTOPRAZOLE SODIUM
     Indication: CHOLELITHIASIS
  2. RIBASPHERE [Concomitant]
     Active Substance: RIBAVIRIN
     Indication: HEPATITIS C
  3. HYDROCHLOROTHIAZIDE. [Concomitant]
     Active Substance: HYDROCHLOROTHIAZIDE
     Indication: HYPERTENSION
  4. LISINOPRIL. [Concomitant]
     Active Substance: LISINOPRIL
     Indication: HYPERTENSION
  5. VIEKIRA PAK [Suspect]
     Active Substance: DASABUVIR\OMBITASVIR\PARITAPREVIR\RITONAVIR
     Indication: HEPATITIS C
     Dosage: TAKE VIEKIRA PER MANUFACTURER PACKAGE DIRECTIONS IN THE AM AND PM WITH FOOD
     Route: 048
     Dates: start: 20150602

REACTIONS (10)
  - Medical device complication [Recovered/Resolved]
  - Dizziness [Recovered/Resolved]
  - Blood potassium decreased [Not Recovered/Not Resolved]
  - Vomiting [Recovered/Resolved]
  - Chest pain [Recovered/Resolved]
  - Loss of consciousness [Recovered/Resolved]
  - Cellulitis [Recovering/Resolving]
  - Head injury [Recovered/Resolved]
  - Peripheral swelling [Recovering/Resolving]
  - Device related infection [Recovered/Resolved]

NARRATIVE: CASE EVENT DATE: 201507
